FAERS Safety Report 5096241-3 (Version None)
Quarter: 2006Q3

REPORT INFORMATION
  Report Type: 
  Country: None (occurrence: None)
  Receive Date: 20060905
  Receipt Date: 20060824
  Transmission Date: 20061208
  Serious: Yes (Other)
  Sender: FDA-Public Use
  Company Number: US-ROCHE-460915

PATIENT
  Age: 52 Year
  Sex: Female
  Weight: 54.4 kg

DRUGS (4)
  1. BONIVA [Suspect]
     Indication: OSTEOPENIA
     Route: 048
     Dates: start: 20060315
  2. ARIMIDEX [Concomitant]
     Indication: BREAST CANCER
     Route: 048
     Dates: start: 20021021
  3. CALCIUM GLUCONATE [Concomitant]
     Indication: OSTEOPENIA
     Route: 048
  4. PREVACID [Concomitant]
     Route: 048

REACTIONS (7)
  - CARDIOVASCULAR DISORDER [None]
  - HYPOAESTHESIA FACIAL [None]
  - PERICARDIAL EFFUSION [None]
  - PULMONARY HYPERTENSION [None]
  - PULMONARY VALVE INCOMPETENCE [None]
  - TACHYCARDIA [None]
  - TRICUSPID VALVE INCOMPETENCE [None]
